FAERS Safety Report 17420064 (Version 2)
Quarter: 2020Q1

REPORT INFORMATION
  Report Type: Spontaneous
  Country: US (occurrence: US)
  Receive Date: 20200214
  Receipt Date: 20200320
  Transmission Date: 20200409
  Serious: No
  Sender: FDA-Public Use
  Company Number: US-ASTRAZENECA-2020SE10133

PATIENT
  Age: 80 Year
  Sex: Female

DRUGS (1)
  1. SYMBICORT [Suspect]
     Active Substance: BUDESONIDE\FORMOTEROL FUMARATE DIHYDRATE
     Dosage: 160/4.5 MCG 120 INHALATIONS,2 PUFFS IN THE MORNING AND 2 PUFFS AT NIGHT
     Route: 055

REACTIONS (8)
  - Inability to afford medication [Unknown]
  - Device issue [Unknown]
  - Malaise [Unknown]
  - Product use issue [Unknown]
  - Memory impairment [Unknown]
  - Intentional product misuse [Unknown]
  - Product taste abnormal [Unknown]
  - Drug delivery system issue [Unknown]
